FAERS Safety Report 9203098 (Version 1)
Quarter: 2013Q2

REPORT INFORMATION
  Report Type: Spontaneous
  Country: US (occurrence: US)
  Receive Date: 20130402
  Receipt Date: 20130402
  Transmission Date: 20140414
  Serious: No
  Sender: FDA-Public Use
  Company Number: US-009507513-1304USA000097

PATIENT
  Sex: Male

DRUGS (3)
  1. JANUVIA [Suspect]
     Indication: DIABETES MELLITUS
     Dosage: 100 MG, QD
     Route: 048
  2. GLIMEPIRIDE (+) METFORMIN HYDROCHLORIDE [Concomitant]
  3. BENICAR [Concomitant]

REACTIONS (2)
  - Blood glucose increased [Unknown]
  - Dyspepsia [Unknown]
